FAERS Safety Report 19221593 (Version 1)
Quarter: 2021Q2

REPORT INFORMATION
  Report Type: Report from Study
  Country: US (occurrence: US)
  Receive Date: 20210506
  Receipt Date: 20210506
  Transmission Date: 20210717
  Serious: Yes (Death)
  Sender: FDA-Public Use
  Company Number: US-ASTRAZENECA-2021A393678

PATIENT
  Age: 22433 Day
  Sex: Female

DRUGS (2)
  1. TAGRISSO [Suspect]
     Active Substance: OSIMERTINIB
     Indication: METASTASES TO LIVER
     Route: 048
     Dates: start: 20200114
  2. TAGRISSO [Suspect]
     Active Substance: OSIMERTINIB
     Indication: CHOLANGIOCARCINOMA
     Route: 048
     Dates: start: 20200114

REACTIONS (1)
  - Death [Fatal]

NARRATIVE: CASE EVENT DATE: 20210502
